FAERS Safety Report 11248241 (Version 1)
Quarter: 2015Q3

REPORT INFORMATION
  Report Type: Spontaneous
  Country: US (occurrence: None)
  Receive Date: 20150707
  Receipt Date: 20150707
  Transmission Date: 20151125
  Serious: Yes (Hospitalization)
  Sender: FDA-Public Use
  Company Number: None

PATIENT
  Age: 72 Year
  Sex: Male

DRUGS (2)
  1. ASPIRIN. [Suspect]
     Active Substance: ASPIRIN
     Indication: CORONARY ARTERY DISEASE
     Route: 048
     Dates: start: 20150420
  2. APIXABAN [Suspect]
     Active Substance: APIXABAN
     Indication: THROMBOSIS PROPHYLAXIS
     Route: 048
     Dates: start: 20150420

REACTIONS (6)
  - Anaemia [None]
  - Haemoglobin decreased [None]
  - Occult blood positive [None]
  - Gastric haemorrhage [None]
  - Orthostatic hypotension [None]
  - Aortic aneurysm [None]

NARRATIVE: CASE EVENT DATE: 20150430
